FAERS Safety Report 23956109 (Version 2)
Quarter: 2025Q1

REPORT INFORMATION
  Report Type: Spontaneous
  Country: JP (occurrence: JP)
  Receive Date: 20240610
  Receipt Date: 20250114
  Transmission Date: 20250408
  Serious: Yes (Other)
  Sender: PFIZER
  Company Number: JP-PFIZER INC-202400186209

PATIENT

DRUGS (1)
  1. BESPONSA [Suspect]
     Active Substance: INOTUZUMAB OZOGAMICIN

REACTIONS (1)
  - Cytokine release syndrome [Unknown]
